FAERS Safety Report 16704281 (Version 12)
Quarter: 2021Q4

REPORT INFORMATION
  Report Type: Report from Study
  Country: FR (occurrence: FR)
  Receive Date: 20190814
  Receipt Date: 20211015
  Transmission Date: 20220303
  Serious: Yes (Death, Life-Threatening, Hospitalization, Other)
  Sender: FDA-Public Use
  Company Number: FR-002147023-PHHY2019FR055478

PATIENT
  Age: 67 Year
  Sex: Female
  Weight: 72 kg

DRUGS (20)
  1. BISOPROLOL [Suspect]
     Active Substance: BISOPROLOL
     Indication: Hypertension
     Dosage: 10 MILLIGRAM, QD
     Route: 065
     Dates: end: 20190307
  2. ACARBOSE [Suspect]
     Active Substance: ACARBOSE
     Indication: Type 2 diabetes mellitus
     Dosage: 150 MILLIGRAM, QD
     Route: 065
     Dates: end: 20190307
  3. METFORMIN HYDROCHLORIDE [Suspect]
     Active Substance: METFORMIN HYDROCHLORIDE
     Indication: Type 2 diabetes mellitus
     Dosage: 3000 MILLIGRAM, QD
     Route: 048
  4. METFORMIN HYDROCHLORIDE [Suspect]
     Active Substance: METFORMIN HYDROCHLORIDE
     Dosage: 1000 DOSAGE FORM
     Route: 048
     Dates: end: 20190307
  5. VOTRIENT [Suspect]
     Active Substance: PAZOPANIB HYDROCHLORIDE
     Indication: Renal cancer metastatic
     Dosage: 800 MILLIGRAM, QD/START:13-DEC-2018
     Route: 048
  6. VOTRIENT [Suspect]
     Active Substance: PAZOPANIB HYDROCHLORIDE
     Dosage: 600 MILLIGRAM, QD/START:26-FEB-2019
     Route: 048
     Dates: end: 20190307
  7. VOTRIENT [Suspect]
     Active Substance: PAZOPANIB HYDROCHLORIDE
     Dosage: 600 MILLIGRAM, QD/START:13-DEC-2018
     Route: 048
     Dates: end: 20191126
  8. VOTRIENT [Suspect]
     Active Substance: PAZOPANIB HYDROCHLORIDE
     Dosage: 800 MILLIGRAM, QD/START:08-JAN-2019
     Route: 048
     Dates: end: 20191126
  9. VOTRIENT [Suspect]
     Active Substance: PAZOPANIB HYDROCHLORIDE
     Dosage: 600 MILLIGRAM, QD/START:26-FEB-2019
     Route: 048
  10. VOTRIENT [Suspect]
     Active Substance: PAZOPANIB HYDROCHLORIDE
     Dosage: 400 MILLIGRAM, QD/START:14-MAY-2019
     Route: 048
  11. VOTRIENT [Suspect]
     Active Substance: PAZOPANIB HYDROCHLORIDE
     Dosage: 400 MILLIGRAM, QD/START:13-DEC-2018
     Route: 048
     Dates: end: 20191126
  12. JANUVIA [Suspect]
     Active Substance: SITAGLIPTIN PHOSPHATE
     Indication: Type 2 diabetes mellitus
     Dosage: 100 MILLIGRAM, DAILY
     Route: 065
     Dates: end: 20190307
  13. EZETIMIBE\SIMVASTATIN [Suspect]
     Active Substance: EZETIMIBE\SIMVASTATIN
     Indication: Dyslipidaemia
     Dosage: 10 MILLIGRAM, QD, (10 MG/ 20 MG) DAILY
     Route: 065
     Dates: end: 20190307
  14. INDAPAMIDE\PERINDOPRIL ERBUMINE [Suspect]
     Active Substance: INDAPAMIDE\PERINDOPRIL ERBUMINE
     Indication: Hypertension
     Dosage: UNK
     Route: 065
     Dates: end: 20190307
  15. INDAPAMIDE\PERINDOPRIL ERBUMINE [Suspect]
     Active Substance: INDAPAMIDE\PERINDOPRIL ERBUMINE
     Dosage: START DATE:07-MAR-2019
     Route: 065
  16. LANTUS [Suspect]
     Active Substance: INSULIN GLARGINE
     Indication: Type 2 diabetes mellitus
     Dosage: 50 INTERNATIONAL UNIT, QD
     Route: 065
     Dates: end: 20190307
  17. RILMENIDINE [Suspect]
     Active Substance: RILMENIDINE
     Indication: Hypertension
     Dosage: 1 MG, DAILY
     Route: 065
  18. RILMENIDINE [Suspect]
     Active Substance: RILMENIDINE
     Dosage: 1 DOSAGE FORM ,1 DF (1 UG/ LITER),
     Route: 048
     Dates: end: 20190307
  19. KARDEGIC [Concomitant]
     Active Substance: ASPIRIN DL-LYSINE
     Indication: Product used for unknown indication
     Dosage: 75 MG, DAILY
     Route: 065
  20. RILMENIDINE [Concomitant]
     Active Substance: RILMENIDINE
     Indication: Product used for unknown indication
     Dosage: 1 MG, DAILY
     Route: 065

REACTIONS (38)
  - Renal cancer metastatic [Fatal]
  - Metastases to central nervous system [Fatal]
  - Malignant neoplasm progression [Fatal]
  - Accidental overdose [Unknown]
  - Acute kidney injury [Recovered/Resolved with Sequelae]
  - Dehydration [Recovered/Resolved with Sequelae]
  - Hypothyroidism [Recovering/Resolving]
  - Staphylococcal sepsis [Recovering/Resolving]
  - Peripheral artery haematoma [Unknown]
  - General physical health deterioration [Unknown]
  - Metabolic acidosis [Unknown]
  - Blood pressure systolic increased [Unknown]
  - Heart rate decreased [Unknown]
  - Pneumonia [Recovering/Resolving]
  - Blood pressure systolic decreased [Unknown]
  - Decreased appetite [Unknown]
  - Lactic acidosis [Recovering/Resolving]
  - Diarrhoea [Recovered/Resolved]
  - Vomiting [Recovered/Resolved]
  - Shock [Recovered/Resolved]
  - Coma [Recovered/Resolved]
  - Hyperkalaemia [Recovered/Resolved]
  - Anaemia [Recovered/Resolved]
  - Hyperleukocytosis [Recovered/Resolved]
  - Shock haemorrhagic [Recovered/Resolved]
  - Staphylococcal infection [Recovered/Resolved]
  - Haematoma [Unknown]
  - Cell death [Recovered/Resolved]
  - Malnutrition [Recovered/Resolved]
  - Chronic kidney disease [Unknown]
  - Vitamin D deficiency [Recovered/Resolved]
  - Urinary incontinence [Not Recovered/Not Resolved]
  - Intestinal transit time abnormal [Not Recovered/Not Resolved]
  - Constipation [Not Recovered/Not Resolved]
  - Oedema peripheral [Recovered/Resolved]
  - Psychomotor retardation [Recovered/Resolved]
  - Pruritus [Recovered/Resolved]
  - Asthenia [Not Recovered/Not Resolved]

NARRATIVE: CASE EVENT DATE: 20190108
